FAERS Safety Report 6218959-9 (Version None)
Quarter: 2009Q2

REPORT INFORMATION
  Report Type: 
  Country: None (occurrence: None)
  Receive Date: 20090608
  Receipt Date: 20090526
  Transmission Date: 20091009
  Serious: Yes (Hospitalization)
  Sender: FDA-Public Use
  Company Number: PHHY2009JP20848

PATIENT
  Age: 51 Year
  Sex: Male

DRUGS (2)
  1. DIOVAN HCT [Suspect]
     Indication: HYPERTENSION
     Dosage: 1 DF/DAY
     Route: 048
     Dates: start: 20090516, end: 20090518
  2. CALSLOT [Concomitant]
     Dosage: 1 DF/DAY
     Route: 048
     Dates: start: 20090201

REACTIONS (1)
  - CEREBRAL HAEMORRHAGE [None]
